FAERS Safety Report 6453855-3 (Version None)
Quarter: 2009Q4

REPORT INFORMATION
  Report Type: 
  Country: None (occurrence: None)
  Receive Date: 20091124
  Receipt Date: 20091120
  Transmission Date: 20100525
  Serious: Yes (Death)
  Sender: FDA-Public Use
  Company Number: JP-ABBOTT-09P-087-0609612-00

PATIENT
  Sex: Male

DRUGS (6)
  1. SYNAGIS [Suspect]
     Indication: INFECTION PROPHYLAXIS
     Dates: start: 20091109
  2. SYNAGIS [Suspect]
     Indication: LOWER RESPIRATORY TRACT INFECTION
  3. MUCODYNE [Concomitant]
     Indication: PYREXIA
     Dates: start: 20091113, end: 20091115
  4. ACETAMINOPHEN [Concomitant]
     Indication: PYREXIA
     Dates: start: 20091113, end: 20091115
  5. CEFDINIR [Concomitant]
     Indication: PYREXIA
     Dates: start: 20091113, end: 20091115
  6. MEQUITAZINE [Concomitant]
     Indication: PYREXIA
     Dates: start: 20091113, end: 20091115

REACTIONS (2)
  - CARDIO-RESPIRATORY ARREST [None]
  - PYREXIA [None]
